FAERS Safety Report 9885546 (Version 2)
Quarter: 2014Q1

REPORT INFORMATION
  Report Type: Spontaneous
  Country: DE (occurrence: DE)
  Receive Date: 20140210
  Receipt Date: 20140210
  Transmission Date: 20141002
  Serious: Yes (Death, Hospitalization)
  Sender: FDA-Public Use
  Company Number: DE-BAYER-2013-125143

PATIENT
  Age: 84 Year
  Sex: Female

DRUGS (16)
  1. MOXIFLOXACIN ORAL [Suspect]
     Indication: PNEUMONIA
     Dosage: 400 MG, UNK
     Route: 048
     Dates: start: 20130830, end: 20130902
  2. L-THYROXIN [Concomitant]
     Dosage: 50 ?G, OM
  3. CLOPIDOGREL [Concomitant]
     Dosage: 75 MG, QD
  4. IBUPROFEN [Concomitant]
  5. PIPERACILLIN W/TAZOBACTAM [Concomitant]
     Indication: LUNG INFECTION
     Dosage: 4/0.5 G, BID
     Dates: start: 20130903
  6. CLONIDINE [Concomitant]
     Dosage: 0-0-1
     Route: 047
  7. VALORON [Concomitant]
  8. PREDNISONE [Concomitant]
  9. TRIAMTERENE [Concomitant]
  10. DOXEPIN [Concomitant]
  11. THEOPHYLLINE [Concomitant]
  12. VIGANTOLETTEN [Concomitant]
  13. BISOPROLOL [Concomitant]
     Dosage: 1.25 ?G, OM
  14. SYMBICORT [Concomitant]
     Dosage: 160/ 45 ?G, 1-0-1
  15. MORPHINE [Concomitant]
     Dosage: 2-5 MG AS NECESSARY I.V/S.C.
  16. HEPARIN [Concomitant]
     Dosage: 5000 IU, BID

REACTIONS (1)
  - Renal failure acute [Fatal]
